FAERS Safety Report 25690303 (Version 1)
Quarter: 2025Q3

REPORT INFORMATION
  Report Type: Report from Study
  Country: US (occurrence: US)
  Receive Date: 20250818
  Receipt Date: 20250818
  Transmission Date: 20251020
  Serious: Yes (Death, Hospitalization, Other)
  Sender: ABBVIE
  Company Number: CA-ABBVIE-6418393

PATIENT
  Age: 74 Year
  Sex: Male

DRUGS (17)
  1. VENCLEXTA [Suspect]
     Active Substance: VENETOCLAX
     Indication: Acute myeloid leukaemia
     Dosage: 200 MG ONCE DAILY
     Route: 048
     Dates: start: 20250721
  2. AZACITIDINE [Suspect]
     Active Substance: AZACITIDINE
     Indication: Acute myeloid leukaemia
     Route: 065
  3. BACLOFEN [Concomitant]
     Active Substance: BACLOFEN
     Indication: Product used for unknown indication
  4. BISOPROLOL [Concomitant]
     Active Substance: BISOPROLOL
     Indication: Product used for unknown indication
     Route: 048
  5. VITAMIN D [Concomitant]
     Active Substance: VITAMIN D NOS
     Indication: Product used for unknown indication
  6. VITAMIN B12 [Concomitant]
     Active Substance: CYANOCOBALAMIN
     Indication: Product used for unknown indication
  7. DULOXETINE [Concomitant]
     Active Substance: DULOXETINE
     Indication: Product used for unknown indication
     Route: 048
  8. FLUCONAZOLE [Concomitant]
     Active Substance: FLUCONAZOLE
     Indication: Product used for unknown indication
     Route: 048
  9. HYDROMORPHONE [Concomitant]
     Active Substance: HYDROMORPHONE
     Indication: Product used for unknown indication
     Dosage: AS NEEDED
     Route: 048
  10. IPRATROPIUM [Concomitant]
     Active Substance: IPRATROPIUM
     Indication: Product used for unknown indication
  11. NITROGLYCERIN [Concomitant]
     Active Substance: NITROGLYCERIN
     Indication: Product used for unknown indication
  12. OLANZAPINE [Concomitant]
     Active Substance: OLANZAPINE
     Indication: Product used for unknown indication
     Dosage: DAILY
     Route: 048
  13. PREGABALIN [Concomitant]
     Active Substance: PREGABALIN
     Indication: Product used for unknown indication
     Route: 048
  14. SENOKOT [Concomitant]
     Active Substance: SENNOSIDES
     Indication: Product used for unknown indication
  15. SYMBICORT [Concomitant]
     Active Substance: BUDESONIDE\FORMOTEROL FUMARATE DIHYDRATE
     Indication: Product used for unknown indication
  16. TRAZODONE [Concomitant]
     Active Substance: TRAZODONE HYDROCHLORIDE
     Indication: Product used for unknown indication
     Route: 048
  17. VALACYCLOVIR [Concomitant]
     Active Substance: VALACYCLOVIR HYDROCHLORIDE
     Indication: Product used for unknown indication
     Route: 048

REACTIONS (3)
  - Pulmonary haemorrhage [Fatal]
  - Febrile neutropenia [Fatal]
  - Heart rate irregular [Fatal]

NARRATIVE: CASE EVENT DATE: 20250805
